FAERS Safety Report 17563148 (Version 1)
Quarter: 2020Q1

REPORT INFORMATION
  Report Type: Spontaneous
  Country: FR (occurrence: FR)
  Receive Date: 20200320
  Receipt Date: 20200320
  Transmission Date: 20200409
  Serious: Yes (Hospitalization)
  Sender: FDA-Public Use
  Company Number: FR-SUN PHARMACEUTICAL INDUSTRIES LTD-2020RR-240894

PATIENT
  Age: 46 Year
  Sex: Female
  Weight: 47 kg

DRUGS (4)
  1. PRAZEPAM [Suspect]
     Active Substance: PRAZEPAM
     Indication: INTENTIONAL OVERDOSE
     Dosage: 200 MILLIGRAMS, IN TOTAL
     Route: 048
     Dates: start: 20191223, end: 20191223
  2. PARACETAMOL [Suspect]
     Active Substance: ACETAMINOPHEN
     Indication: INTENTIONAL OVERDOSE
     Dosage: 24 GRAMS, IN TOTAL
     Route: 048
     Dates: start: 20191223, end: 20191223
  3. SERESTA 10 MG, COMPRIME [Suspect]
     Active Substance: OXAZEPAM
     Indication: INTENTIONAL OVERDOSE
     Dosage: 600 MILLIGRAMS, IN TOTAL
     Route: 048
     Dates: start: 20191223, end: 20191223
  4. SERTRALINE [Suspect]
     Active Substance: SERTRALINE HYDROCHLORIDE
     Indication: INTENTIONAL OVERDOSE
     Dosage: IN TOTAL
     Route: 048
     Dates: start: 20191223, end: 20191223

REACTIONS (4)
  - Prothrombin time ratio decreased [Recovered/Resolved]
  - Poisoning deliberate [Recovered/Resolved]
  - Bladder dilatation [Recovered/Resolved]
  - Somnolence [Recovered/Resolved]

NARRATIVE: CASE EVENT DATE: 20191223
